FAERS Safety Report 4352553-X (Version None)
Quarter: 2004Q2

REPORT INFORMATION
  Report Type: 
  Country: None (occurrence: None)
  Receive Date: 20040427
  Receipt Date: 20040108
  Transmission Date: 20050107
  Serious: No
  Sender: FDA-Public Use
  Company Number: WAES 0401USA00741

PATIENT
  Age: 45 Year
  Sex: Female
  Weight: 107.0489 kg

DRUGS (16)
  1. EMEND [Suspect]
     Indication: PROPHYLACTIC CHEMOTHERAPY
     Dosage: SEE IMAGE
     Route: 048
     Dates: start: 20031120, end: 20031120
  2. EMEND [Suspect]
     Indication: PROPHYLACTIC CHEMOTHERAPY
     Dosage: SEE IMAGE
     Route: 048
     Dates: start: 20031121, end: 20031122
  3. EMEND [Suspect]
     Indication: PROPHYLACTIC CHEMOTHERAPY
     Dosage: SEE IMAGE
     Route: 048
     Dates: start: 20031204, end: 20031204
  4. EMEND [Suspect]
     Indication: PROPHYLACTIC CHEMOTHERAPY
     Dosage: SEE IMAGE
     Route: 048
     Dates: start: 20031205, end: 20031206
  5. EMEND [Suspect]
     Indication: PROPHYLACTIC CHEMOTHERAPY
     Dosage: SEE IMAGE
     Route: 048
     Dates: start: 20031218, end: 20031218
  6. EMEND [Suspect]
     Indication: PROPHYLACTIC CHEMOTHERAPY
     Dosage: SEE IMAGE
     Route: 048
     Dates: start: 20031219, end: 20031220
  7. EMEND [Suspect]
     Indication: PROPHYLACTIC CHEMOTHERAPY
     Dosage: SEE IMAGE
     Route: 048
     Dates: start: 20040102, end: 20040102
  8. EMEND [Suspect]
     Indication: PROPHYLACTIC CHEMOTHERAPY
     Dosage: SEE IMAGE
     Route: 048
     Dates: start: 20040103, end: 20040104
  9. EMEND [Suspect]
     Indication: PROPHYLACTIC CHEMOTHERAPY
     Dosage: SEE IMAGE
     Route: 048
     Dates: start: 20031120
  10. EMEND [Suspect]
     Indication: PROPHYLACTIC CHEMOTHERAPY
     Dosage: SEE IMAGE
     Route: 048
     Dates: start: 20031204
  11. EMEND [Suspect]
     Indication: PROPHYLACTIC CHEMOTHERAPY
     Dosage: SEE IMAGE
     Route: 048
     Dates: start: 20031218
  12. EMEND [Suspect]
     Indication: PROPHYLACTIC CHEMOTHERAPY
     Dosage: SEE IMAGE
     Route: 048
     Dates: start: 20040102
  13. COUMADIN [Concomitant]
  14. CYTOXAN [Concomitant]
  15. ZOFRAN [Concomitant]
  16. ALBUTEROL [Concomitant]

REACTIONS (5)
  - CHEST DISCOMFORT [None]
  - DYSPNOEA [None]
  - PARAESTHESIA [None]
  - PULMONARY CONGESTION [None]
  - SINUS CONGESTION [None]
